FAERS Safety Report 4955745-1 (Version None)
Quarter: 2006Q1

REPORT INFORMATION
  Report Type: 
  Country: None (occurrence: None)
  Receive Date: 20060328
  Receipt Date: 20060314
  Transmission Date: 20060701
  Serious: Yes (Hospitalization)
  Sender: FDA-Public Use
  Company Number: OM-ROCHE-440422

PATIENT
  Age: 50 Year
  Sex: Male
  Weight: 80 kg

DRUGS (2)
  1. ROFERON-A [Suspect]
     Route: 058
     Dates: start: 20000815
  2. RIBAVIRIN [Suspect]
     Route: 065

REACTIONS (4)
  - DIABETES MELLITUS INSULIN-DEPENDENT [None]
  - HYPERGLYCAEMIA [None]
  - POLYDIPSIA [None]
  - POLYURIA [None]
